FAERS Safety Report 25590811 (Version 1)
Quarter: 2025Q3

REPORT INFORMATION
  Report Type: Spontaneous
  Country: GB (occurrence: GB)
  Receive Date: 20250722
  Receipt Date: 20250722
  Transmission Date: 20251021
  Serious: Yes (Other)
  Sender: SANDOZ
  Company Number: None

PATIENT
  Age: 59 Year
  Sex: Male
  Weight: 79 kg

DRUGS (17)
  1. EZETIMIBE [Suspect]
     Active Substance: EZETIMIBE
     Indication: Product used for unknown indication
     Dosage: 10 MG, QD, TAKE ONE DAILY
     Route: 065
     Dates: start: 20250414
  2. AMLODIPINE [Concomitant]
     Active Substance: AMLODIPINE BESYLATE
     Indication: Ill-defined disorder
     Dosage: TAKE ONE DAILY
     Route: 065
     Dates: start: 20250414
  3. ATORVASTATIN [Concomitant]
     Active Substance: ATORVASTATIN
     Indication: Ill-defined disorder
     Dosage: TAKE ONE DAILY
     Route: 065
     Dates: start: 20250414
  4. BETAMETHASONE VALERATE [Concomitant]
     Active Substance: BETAMETHASONE VALERATE
     Indication: Ill-defined disorder
     Route: 065
     Dates: start: 20250414
  5. CARBOCYSTEINE [Concomitant]
     Active Substance: CARBOCYSTEINE
     Indication: Ill-defined disorder
     Dosage: TAKE ONE TWICE DAILY
     Route: 065
     Dates: start: 20250414
  6. DERMOL [Concomitant]
     Active Substance: BENZALKONIUM CHLORIDE\CHLORHEXIDINE HYDROCHLORIDE\ISOPROPYL MYRISTATE\PARAFFIN
     Indication: Ill-defined disorder
     Route: 065
     Dates: start: 20250414
  7. DULOXETINE [Concomitant]
     Active Substance: DULOXETINE
     Indication: Ill-defined disorder
     Dosage: TAKE 2 CAPSULES A DAY
     Route: 065
     Dates: start: 20250414
  8. EPILIM [Concomitant]
     Active Substance: VALPROATE SODIUM
     Indication: Ill-defined disorder
     Dosage: TAKE ONE TABLET TWICE DAILY
     Route: 065
     Dates: start: 20250414
  9. MINERAL OIL\PARAFFIN [Concomitant]
     Active Substance: MINERAL OIL\PARAFFIN
     Indication: Ill-defined disorder
     Route: 065
     Dates: start: 20250414
  10. BECLOMETHASONE\FORMOTEROL [Concomitant]
     Active Substance: BECLOMETHASONE\FORMOTEROL
     Indication: Ill-defined disorder
     Dosage: INHALE TWO DOSES TWICE DAILY FOR ASTHMA (INHALE
     Route: 065
     Dates: start: 20250414
  11. LANSOPRAZOLE [Concomitant]
     Active Substance: LANSOPRAZOLE
     Indication: Ill-defined disorder
     Dosage: ONE TWICE DAILY
     Route: 065
     Dates: start: 20250414
  12. LOSARTAN [Concomitant]
     Active Substance: LOSARTAN
     Indication: Ill-defined disorder
     Dosage: TAKE ONE DAILY
     Route: 065
     Dates: start: 20250414
  13. MIRTAZAPINE [Concomitant]
     Active Substance: MIRTAZAPINE
     Indication: Ill-defined disorder
     Route: 065
     Dates: start: 20250414
  14. ALBUTEROL [Concomitant]
     Active Substance: ALBUTEROL
     Indication: Ill-defined disorder
     Route: 065
     Dates: start: 20250414
  15. SPIRIVA [Concomitant]
     Active Substance: TIOTROPIUM BROMIDE MONOHYDRATE
     Indication: Ill-defined disorder
     Dosage: INHALE TWO DOSES ONCE DAILY (INHALE SLOWLY AND
     Route: 065
     Dates: start: 20250414
  16. THIAMINE [Concomitant]
     Active Substance: THIAMINE
     Indication: Ill-defined disorder
     Route: 065
     Dates: start: 20250414
  17. ZOPICLONE [Concomitant]
     Active Substance: ZOPICLONE
     Indication: Ill-defined disorder
     Route: 065
     Dates: start: 20250422, end: 20250506

REACTIONS (1)
  - Tinnitus [Recovered/Resolved]
